FAERS Safety Report 15686542 (Version 5)
Quarter: 2019Q1

REPORT INFORMATION
  Report Type: Spontaneous
  Country: IT (occurrence: IT)
  Receive Date: 20181204
  Receipt Date: 20190130
  Transmission Date: 20190417
  Serious: Yes (Death, Hospitalization)
  Sender: FDA-Public Use
  Company Number: PHHY2018IT173315

PATIENT
  Age: 76 Year
  Sex: Female

DRUGS (5)
  1. PRAMIPEXOLE. [Suspect]
     Active Substance: PRAMIPEXOLE
     Indication: PARKINSON^S DISEASE
     Dosage: 1.05 MG, UNK
     Route: 065
  2. VENLAFAXINE [Concomitant]
     Active Substance: VENLAFAXINE HYDROCHLORIDE
     Indication: PRODUCT USED FOR UNKNOWN INDICATION
     Dosage: 75 MG, UNK
     Route: 065
  3. LEVODOPA+CARBIDOPA [Suspect]
     Active Substance: CARBIDOPA\LEVODOPA
     Indication: DYSKINESIA
     Dosage: 1200 MG, QD
     Route: 065
  4. CLOZAPINE. [Concomitant]
     Active Substance: CLOZAPINE
     Indication: HALLUCINATION, VISUAL
     Dosage: 25 MG, UNK
     Route: 065
  5. ZOLPIDEM [Concomitant]
     Active Substance: ZOLPIDEM\ZOLPIDEM TARTRATE
     Indication: PRODUCT USED FOR UNKNOWN INDICATION
     Dosage: 10 MG, UNK
     Route: 065

REACTIONS (4)
  - Acute pulmonary oedema [Fatal]
  - Respiratory distress [Unknown]
  - Parkinsonism hyperpyrexia syndrome [Fatal]
  - Tachycardia [Unknown]

NARRATIVE: CASE EVENT DATE: 201607
